FAERS Safety Report 21394134 (Version 11)
Quarter: 2024Q2

REPORT INFORMATION
  Report Type: Report from Study
  Country: ES (occurrence: ES)
  Receive Date: 20220930
  Receipt Date: 20240419
  Transmission Date: 20240715
  Serious: Yes (Hospitalization, Other)
  Sender: FDA-Public Use
  Company Number: ES-ABBVIE-4132441

PATIENT
  Sex: Female
  Weight: 72 kg

DRUGS (2)
  1. CARBIDOPA\LEVODOPA [Suspect]
     Active Substance: CARBIDOPA\LEVODOPA
     Indication: Parkinson^s disease
     Route: 050
     Dates: start: 20171129
  2. CARBIDOPA\LEVODOPA [Suspect]
     Active Substance: CARBIDOPA\LEVODOPA
     Dosage: DOSE ADJUSTMENT
     Route: 050

REACTIONS (19)
  - Productive cough [Recovering/Resolving]
  - Respiratory tract infection [Recovered/Resolved]
  - Urinary tract infection [Recovered/Resolved]
  - Cognitive disorder [Not Recovered/Not Resolved]
  - Panic attack [Recovering/Resolving]
  - Hallucination [Not Recovered/Not Resolved]
  - Unevaluable event [Not Recovered/Not Resolved]
  - Asthenia [Unknown]
  - Pneumonia [Recovered/Resolved]
  - Parkinson^s disease [Unknown]
  - Pneumonia [Recovered/Resolved]
  - Infection [Recovered/Resolved]
  - Unevaluable event [Unknown]
  - General physical health deterioration [Unknown]
  - Mobility decreased [Unknown]
  - Stoma site hypergranulation [Recovering/Resolving]
  - Stoma site haemorrhage [Recovering/Resolving]
  - Bedridden [Unknown]
  - Stoma site pain [Unknown]

NARRATIVE: CASE EVENT DATE: 20220101
